FAERS Safety Report 10153245 (Version 1)
Quarter: 2014Q2

REPORT INFORMATION
  Report Type: Spontaneous
  Country: IT (occurrence: IT)
  Receive Date: 20140505
  Receipt Date: 20140505
  Transmission Date: 20141212
  Serious: Yes (Other)
  Sender: FDA-Public Use
  Company Number: PHHY2014IT053812

PATIENT
  Age: 41 Year
  Sex: Female

DRUGS (1)
  1. ACETYLSALICYLIC ACID [Suspect]
     Indication: HEADACHE
     Dosage: 1000 MG, ONCE/SINGLE
     Route: 048
     Dates: start: 20140422, end: 20140422

REACTIONS (1)
  - Abdominal pain upper [Recovered/Resolved]
